FAERS Safety Report 11533065 (Version 3)
Quarter: 2018Q4

REPORT INFORMATION
  Report Type: Spontaneous
  Country: US (occurrence: US)
  Receive Date: 20150921
  Receipt Date: 20181030
  Transmission Date: 20190204
  Serious: Yes (Death, Hospitalization, Other)
  Sender: FDA-Public Use
  Company Number: US-BAUSCH-SP07196

PATIENT
  Age: 92 Year
  Sex: Female
  Weight: 62.65 kg

DRUGS (4)
  1. XIFAXAN [Suspect]
     Active Substance: RIFAXIMIN
     Indication: DIARRHOEA
  2. XIFAXAN [Suspect]
     Active Substance: RIFAXIMIN
     Indication: CLOSTRIDIUM DIFFICILE INFECTION
     Route: 048
     Dates: start: 20091107
  3. KEFLEX [Concomitant]
     Active Substance: CEPHALEXIN
     Indication: PRODUCT USED FOR UNKNOWN INDICATION
     Dosage: 3 TIMES A DAY THROUGH FEEDING TUBE
     Dates: start: 20091109, end: 20091110
  4. XIFAXAN [Suspect]
     Active Substance: RIFAXIMIN
     Indication: PYREXIA

REACTIONS (8)
  - Renal disorder [Fatal]
  - Diarrhoea [Not Recovered/Not Resolved]
  - Clostridium difficile infection [Fatal]
  - Abdominal pain [Not Recovered/Not Resolved]
  - Blood creatinine increased [Not Recovered/Not Resolved]
  - Full blood count increased [Not Recovered/Not Resolved]
  - Megacolon [Fatal]
  - Condition aggravated [Not Recovered/Not Resolved]

NARRATIVE: CASE EVENT DATE: 20091107
